FAERS Safety Report 22216151 (Version 2)
Quarter: 2024Q1

REPORT INFORMATION
  Report Type: Spontaneous
  Country: DE (occurrence: DE)
  Receive Date: 20230417
  Receipt Date: 20240307
  Transmission Date: 20240409
  Serious: Yes (Other)
  Sender: FDA-Public Use
  Company Number: DE-BRISTOL-MYERS SQUIBB COMPANY-2022-028057

PATIENT
  Age: 73 Year
  Sex: Male
  Weight: 51 kg

DRUGS (43)
  1. PACLITAXEL [Suspect]
     Active Substance: PACLITAXEL
     Indication: Non-small cell lung cancer
     Dosage: 158 MG (6 WEEKS)
     Route: 065
     Dates: start: 20211216, end: 20220122
  2. PACLITAXEL [Suspect]
     Active Substance: PACLITAXEL
     Dosage: UNK
     Route: 065
  3. CARBOPLATIN [Suspect]
     Active Substance: CARBOPLATIN
     Indication: Non-small cell lung cancer metastatic
     Dosage: 388 MG (FREQUENCY: UNKNOWN)
     Route: 042
     Dates: start: 20211216, end: 20220202
  4. CARBOPLATIN [Suspect]
     Active Substance: CARBOPLATIN
     Dosage: 388 MG
     Route: 042
     Dates: start: 20211216, end: 20220122
  5. CARBOPLATIN [Suspect]
     Active Substance: CARBOPLATIN
     Dosage: 421 MG, FREQUENCY: ONCE
     Route: 042
     Dates: start: 20211216
  6. IPILIMUMAB [Suspect]
     Active Substance: IPILIMUMAB
     Indication: Non-small cell lung cancer metastatic
     Dosage: 153 MG (6 WEEKS)
     Route: 042
     Dates: start: 20220513
  7. IPILIMUMAB [Suspect]
     Active Substance: IPILIMUMAB
     Dosage: 51 MG (6 WEEKS)
     Route: 042
     Dates: start: 20211216
  8. NIVOLUMAB [Suspect]
     Active Substance: NIVOLUMAB
     Indication: Non-small cell lung cancer metastatic
     Dosage: 360 MG (6 WEEKS)
     Route: 065
     Dates: start: 20211216, end: 20220513
  9. YERVOY [Suspect]
     Active Substance: IPILIMUMAB
     Indication: Non-small cell lung cancer
     Dosage: 153.000MG
     Route: 042
     Dates: start: 20211216, end: 20220513
  10. YERVOY [Suspect]
     Active Substance: IPILIMUMAB
     Dosage: DROPSUNK
     Route: 065
  11. OPDIVO [Suspect]
     Active Substance: NIVOLUMAB
     Indication: Non-small cell lung cancer
     Dosage: 360.000MG
     Route: 042
     Dates: start: 20211216, end: 20220513
  12. OPDIVO [Suspect]
     Active Substance: NIVOLUMAB
     Dosage: UNK
     Route: 065
  13. ACETYLCYSTEINE [Concomitant]
     Active Substance: ACETYLCYSTEINE
     Indication: Product used for unknown indication
     Dosage: UNK
     Route: 065
  14. ACETYLCYSTEINE [Concomitant]
     Active Substance: ACETYLCYSTEINE
     Dosage: UNK
     Route: 065
  15. LAXANS [Concomitant]
     Indication: Product used for unknown indication
     Dosage: UNK (DROPS)
     Route: 065
  16. LAXANS [Concomitant]
     Dosage: 158 MG, FREQUENCY: ONCE, 158 MG DOSE- 6 WEEKLY
     Route: 042
     Dates: start: 20211216, end: 20220122
  17. ANORO ELLIPTA [Concomitant]
     Active Substance: UMECLIDINIUM BROMIDE\VILANTEROL TRIFENATATE
     Indication: Product used for unknown indication
     Dosage: UNK
     Route: 065
  18. ANORO ELLIPTA [Concomitant]
     Active Substance: UMECLIDINIUM BROMIDE\VILANTEROL TRIFENATATE
     Dosage: UNK
     Route: 065
  19. PANTOPRAZOLE [Concomitant]
     Active Substance: PANTOPRAZOLE
     Indication: Non-small cell lung cancer metastatic
     Dosage: UNK
     Route: 065
  20. PANTOPRAZOLE [Concomitant]
     Active Substance: PANTOPRAZOLE
     Dosage: UNK
     Route: 065
  21. HYDROMORPHONE [Concomitant]
     Active Substance: HYDROMORPHONE
     Indication: Product used for unknown indication
     Dosage: UNK
     Route: 065
  22. SIMVASTATIN [Concomitant]
     Active Substance: SIMVASTATIN
     Indication: Product used for unknown indication
     Dosage: UNKUNK
     Route: 065
  23. SIMVASTATIN [Concomitant]
     Active Substance: SIMVASTATIN
     Indication: Product used for unknown indication
     Dosage: UNKUNK
     Route: 065
  24. ASPIRIN [Concomitant]
     Active Substance: ASPIRIN
     Indication: Prophylaxis
     Dosage: UNK
     Route: 065
  25. ASPIRIN [Concomitant]
     Active Substance: ASPIRIN
     Dosage: UNK
     Route: 065
  26. NOVALGIN [Concomitant]
     Indication: Product used for unknown indication
     Dosage: UNK
     Route: 065
  27. NOVALGIN [Concomitant]
     Dosage: 388 MG
     Route: 042
     Dates: start: 20211216, end: 20220202
  28. KLYXENEMA SORBIT [Concomitant]
     Indication: Product used for unknown indication
     Dosage: UNK
     Route: 065
  29. LAXAN [Concomitant]
     Indication: Product used for unknown indication
     Dosage: UNK
     Route: 065
  30. NATRIUMCITRAT [Concomitant]
     Indication: Product used for unknown indication
     Dosage: UNK
     Route: 065
  31. NATRIUM CITRICUM [Concomitant]
     Indication: Product used for unknown indication
     Dosage: UNK
     Route: 065
  32. NATRIUM CITRICUM [Concomitant]
     Dosage: 153 MG
     Route: 042
     Dates: start: 20211216, end: 20220513
  33. HYDROMORPHONE HYDROCHLORIDE [Concomitant]
     Active Substance: HYDROMORPHONE HYDROCHLORIDE
     Indication: Product used for unknown indication
     Dosage: UNK
     Route: 065
  34. COLUFASE [Concomitant]
     Indication: Product used for unknown indication
     Dosage: UNK
     Route: 065
  35. SODIUM PICOSULFATE [Concomitant]
     Active Substance: SODIUM PICOSULFATE
     Indication: Product used for unknown indication
     Dosage: UNK
     Route: 065
  36. BISACODYL [Concomitant]
     Active Substance: BISACODYL
     Indication: Product used for unknown indication
     Dosage: UNKNOWN
     Route: 065
  37. PANTOZAL [Concomitant]
     Indication: Product used for unknown indication
     Dosage: UNK
     Route: 065
  38. NATRIUM BENZOAT [Concomitant]
     Indication: Product used for unknown indication
     Dosage: UNKNOWN
     Route: 065
  39. SORBITOL [Concomitant]
     Active Substance: SORBITOL
     Indication: Product used for unknown indication
     Dosage: UNKNOWN
     Route: 065
  40. CITRIC ACID MONOHYDRATE\SODIUM CITRATE [Concomitant]
     Active Substance: CITRIC ACID MONOHYDRATE\SODIUM CITRATE
     Indication: Product used for unknown indication
     Dosage: UNK
     Route: 065
  41. SODIUM PICOSULFATE [Concomitant]
     Active Substance: SODIUM PICOSULFATE
     Indication: Product used for unknown indication
     Dosage: UNKNOWN
     Route: 065
  42. SODIUM PICOSULFATE [Concomitant]
     Active Substance: SODIUM PICOSULFATE
     Indication: Product used for unknown indication
     Dosage: UNKNOWN
     Route: 065
  43. SODIUM BENZOATE [Concomitant]
     Active Substance: SODIUM BENZOATE
     Indication: Product used for unknown indication
     Dosage: UNKNOWN
     Route: 065

REACTIONS (4)
  - Neutropenia [Not Recovered/Not Resolved]
  - Pneumonia bacterial [Recovered/Resolved]
  - Intentional product use issue [Unknown]
  - Off label use [Unknown]

NARRATIVE: CASE EVENT DATE: 20220120
